FAERS Safety Report 5765333-5 (Version None)
Quarter: 2008Q2

REPORT INFORMATION
  Report Type: 
  Country: None (occurrence: None)
  Receive Date: 20080611
  Receipt Date: 20080603
  Transmission Date: 20081010
  Serious: Yes (Hospitalization)
  Sender: FDA-Public Use
  Company Number: US-BAYER-200824895NA

PATIENT
  Age: 73 Year
  Sex: Female

DRUGS (2)
  1. DACARBAZINE [Suspect]
     Indication: MALIGNANT MELANOMA
     Dosage: TOTAL DAILY DOSE: 2000 MG
     Route: 042
     Dates: start: 20080409, end: 20080507
  2. DASATINIB [Suspect]
     Indication: MALIGNANT MELANOMA
     Dosage: TOTAL DAILY DOSE: 140 MG
     Route: 048
     Dates: start: 20080410, end: 20080501

REACTIONS (1)
  - LOCALISED INFECTION [None]
